FAERS Safety Report 5054811-2 (Version None)
Quarter: 2006Q3

REPORT INFORMATION
  Report Type: 
  Country: None (occurrence: None)
  Receive Date: 20060719
  Receipt Date: 20060707
  Transmission Date: 20061208
  Serious: Yes (Other)
  Sender: FDA-Public Use
  Company Number: 2006AC01277

PATIENT

DRUGS (5)
  1. OMEPRAZOLE [Suspect]
  2. CLARITHROMYCIN [Suspect]
  3. LOVASTATIN [Concomitant]
  4. DIAZEPAM [Concomitant]
  5. AMLODIPINE [Concomitant]

REACTIONS (1)
  - RHABDOMYOLYSIS [None]
